FAERS Safety Report 5494406-X (Version None)
Quarter: 2007Q4

REPORT INFORMATION
  Report Type: 
  Country: None (occurrence: None)
  Receive Date: 20071022
  Receipt Date: 20071022
  Transmission Date: 20080405
  Serious: Yes (Other)
  Sender: FDA-Public Use
  Company Number: None

PATIENT
  Age: 40 Year
  Sex: Male
  Weight: 77.1115 kg

DRUGS (1)
  1. SOTALOL HYDROCHLORIDE [Suspect]
     Indication: HEART RATE IRREGULAR
     Dosage: DAILY
     Dates: start: 20070718, end: 20071018

REACTIONS (1)
  - BLOOD GLUCOSE INCREASED [None]
